FAERS Safety Report 6789830-9 (Version None)
Quarter: 2010Q2

REPORT INFORMATION
  Report Type: 
  Country: None (occurrence: None)
  Receive Date: 20100624
  Receipt Date: 20100611
  Transmission Date: 20101027
  Serious: Yes (Other)
  Sender: FDA-Public Use
  Company Number: PHHY2010US36665

PATIENT
  Sex: Male
  Weight: 70 kg

DRUGS (8)
  1. EXJADE [Suspect]
     Indication: MYELODYSPLASTIC SYNDROME
     Dosage: 1500 MG DAILY
     Route: 048
     Dates: start: 20100514
  2. ACYCLOVIR [Concomitant]
  3. MULTI-VITAMIN [Concomitant]
  4. DAPSONE [Concomitant]
  5. FOLIC ACID [Concomitant]
  6. FLUCONAZOLE [Concomitant]
  7. CIPRO [Concomitant]
  8. FAMOTIDINE [Concomitant]

REACTIONS (4)
  - BALANCE DISORDER [None]
  - CENTRAL VENOUS CATHETERISATION [None]
  - DIZZINESS [None]
  - RASH GENERALISED [None]
